FAERS Safety Report 7804143-1 (Version None)
Quarter: 2011Q4

REPORT INFORMATION
  Report Type: 
  Country: None (occurrence: None)
  Receive Date: 20111010
  Receipt Date: 20110926
  Transmission Date: 20120403
  Serious: No
  Sender: FDA-Public Use
  Company Number: US-B.I. PHARMACEUTICALS,INC./RIDGEFIELD-2011-BP-22882BP

PATIENT
  Sex: Male

DRUGS (3)
  1. LANTUS [Suspect]
     Indication: TYPE 2 DIABETES MELLITUS
     Route: 058
     Dates: start: 20090101, end: 20090101
  2. CLONIDINE HCL [Suspect]
  3. AMLODIPINE [Suspect]

REACTIONS (4)
  - BLISTER [None]
  - PAIN IN EXTREMITY [None]
  - RASH [None]
  - DERMATITIS [None]
